FAERS Safety Report 10090576 (Version 2)
Quarter: 2014Q2

REPORT INFORMATION
  Report Type: Spontaneous
  Country: US (occurrence: US)
  Receive Date: 20140421
  Receipt Date: 20140512
  Transmission Date: 20141212
  Serious: Yes (Hospitalization, Other)
  Sender: FDA-Public Use
  Company Number: US-BAYER-2014-056565

PATIENT
  Age: 38 Year
  Sex: Female

DRUGS (3)
  1. YASMIN [Suspect]
  2. GLUCOVANCE [Concomitant]
     Dosage: 5/500, BID
     Dates: start: 20061020
  3. LOTREL [Concomitant]
     Dosage: 5/10 DAILY
     Route: 048
     Dates: start: 20061020

REACTIONS (3)
  - Pulmonary embolism [None]
  - Deep vein thrombosis [None]
  - Cholelithiasis [None]
